FAERS Safety Report 23245646 (Version 3)
Quarter: 2024Q1

REPORT INFORMATION
  Report Type: Spontaneous
  Country: US (occurrence: US)
  Receive Date: 20231130
  Receipt Date: 20240219
  Transmission Date: 20240410
  Serious: Yes (Other)
  Sender: FDA-Public Use
  Company Number: US-BAYER-2023A169621

PATIENT
  Age: 12 Year
  Sex: Male

DRUGS (3)
  1. KOVALTRY [Suspect]
     Active Substance: ANTIHEMOPHILIC FACTOR, HUMAN RECOMBINANT
     Indication: Factor VIII deficiency
     Dosage: 1000 U
     Route: 042
     Dates: start: 202211
  2. KOVALTRY [Suspect]
     Active Substance: ANTIHEMOPHILIC FACTOR, HUMAN RECOMBINANT
     Indication: Factor VIII deficiency
     Dosage: 250 U
     Route: 042
     Dates: start: 202211
  3. KOVALTRY [Suspect]
     Active Substance: ANTIHEMOPHILIC FACTOR, HUMAN RECOMBINANT
     Indication: Factor VIII deficiency
     Dosage: 1450 U, ON MONDAY AND WEDNESDAY AND AS NEEDED FOR MINOR BREAKTHROUGH BLEEDS
     Route: 042

REACTIONS (3)
  - Haemorrhage [None]
  - Haemorrhage [None]
  - Peripheral swelling [None]

NARRATIVE: CASE EVENT DATE: 20230811
